FAERS Safety Report 21038623 (Version 3)
Quarter: 2022Q3

REPORT INFORMATION
  Report Type: Spontaneous
  Country: US (occurrence: US)
  Receive Date: 20220704
  Receipt Date: 20220822
  Transmission Date: 20221027
  Serious: No
  Sender: FDA-Public Use
  Company Number: US-JNJFOC-20220649356

PATIENT
  Age: 56 Year
  Sex: Female

DRUGS (3)
  1. WOMENS ROGAINE UNSCENTED [Suspect]
     Active Substance: MINOXIDIL
     Indication: Alopecia
     Dosage: DOSE: DISPENSED ABOUT ONE HALF CUPFUL
     Route: 061
     Dates: start: 20220401, end: 2022
  2. LISINOPRIL [Concomitant]
     Active Substance: LISINOPRIL
     Indication: Hypertension
     Route: 065
     Dates: start: 20210103
  3. FISH OIL [Concomitant]
     Active Substance: FISH OIL
     Indication: Blood cholesterol increased
     Route: 065
     Dates: start: 20210103

REACTIONS (2)
  - Application site rash [Recovered/Resolved]
  - Application site pruritus [Recovered/Resolved]

NARRATIVE: CASE EVENT DATE: 20220525
